FAERS Safety Report 9800582 (Version 2)
Quarter: 2014Q1

REPORT INFORMATION
  Report Type: Report from Study
  Country: US (occurrence: US)
  Receive Date: 20140107
  Receipt Date: 20140109
  Transmission Date: 20141002
  Serious: Yes (Hospitalization)
  Sender: FDA-Public Use
  Company Number: US-ROCHE-1321502

PATIENT
  Age: 83 Year
  Sex: Female

DRUGS (9)
  1. LUCENTIS [Suspect]
     Indication: DIABETIC RETINAL OEDEMA
     Dosage: OS Q 2-3 WKS; OD Q4WKS
     Route: 050
     Dates: start: 20100828, end: 20130311
  2. LUCENTIS [Suspect]
     Indication: DIABETIC RETINOPATHY
     Dosage: OU
     Route: 050
     Dates: start: 2013, end: 20130311
  3. VISINE [Concomitant]
     Dosage: OU PRN
     Route: 047
     Dates: end: 20120820
  4. ASA [Concomitant]
     Route: 048
  5. POVIDONE [Concomitant]
     Route: 065
  6. POLYTRIM [Concomitant]
     Dosage: IN INJECTION EYE 3/4 X/DAY X 3 DAYS POST LUCENTIS
     Route: 065
  7. PHENYLEPHRINE [Concomitant]
     Route: 065
  8. TROPICAMIDE [Concomitant]
     Route: 065
  9. PROPARACAINE [Concomitant]
     Route: 065

REACTIONS (9)
  - Food poisoning [Recovered/Resolved]
  - Colitis [Unknown]
  - Cerebrovascular accident [Unknown]
  - Paracentesis [Unknown]
  - Visual impairment [Unknown]
  - Vitreous floaters [Unknown]
  - Vision blurred [Unknown]
  - Eye swelling [Not Recovered/Not Resolved]
  - Retinal detachment [Unknown]
